FAERS Safety Report 16717195 (Version 2)
Quarter: 2019Q4

REPORT INFORMATION
  Report Type: Spontaneous
  Country: US (occurrence: US)
  Receive Date: 20190819
  Receipt Date: 20191104
  Transmission Date: 20200122
  Serious: No
  Sender: FDA-Public Use
  Company Number: US-PFIZER INC-2019350104

PATIENT
  Age: 76 Year
  Sex: Male

DRUGS (6)
  1. LASIX [Concomitant]
     Active Substance: FUROSEMIDE
     Dosage: 60 MG, 2X/DAY (TAKE 1.5 TABLETS (60 MG) BY MOUTH TWO TIMES DAILY)
     Route: 048
  2. COZAAR [Concomitant]
     Active Substance: LOSARTAN POTASSIUM
     Dosage: 50 MG, 2X/DAY (TAKE 1 TABLET (50 MG) BY MOUTH TWO TIMES DAILY)
     Route: 048
  3. TOPROL XL [Concomitant]
     Active Substance: METOPROLOL SUCCINATE
     Dosage: 50 MG, 2X/DAY (TAKE 1 TABLET (50 MG) BY MOUTH TWO TIMES DAILY)
     Route: 048
  4. ALDACTONE [Concomitant]
     Active Substance: SPIRONOLACTONE
     Dosage: 12.5 MG, 1X/DAY (TAKE 0.5 TABLETS (12.5 MG) BY MOUTH ONCE DAILY)
     Route: 048
  5. ASPIRIN. [Concomitant]
     Active Substance: ASPIRIN
     Dosage: 81 MG, UNK (CHEW 81 MG AND SWALLOW)
     Route: 048
  6. TAFAMIDIS [Suspect]
     Active Substance: TAFAMIDIS MEGLUMINE
     Dosage: 61 MG, 1X/DAY
     Route: 048

REACTIONS (2)
  - Asthenia [Unknown]
  - Cough [Unknown]
